FAERS Safety Report 6762480-6 (Version None)
Quarter: 2010Q2

REPORT INFORMATION
  Report Type: 
  Country: None (occurrence: None)
  Receive Date: 20100609
  Receipt Date: 20100531
  Transmission Date: 20101027
  Serious: Yes (Life-Threatening, Hospitalization)
  Sender: FDA-Public Use
  Company Number: RO-TEVA-236610ISR

PATIENT
  Sex: Female

DRUGS (1)
  1. COPAXONE [Suspect]
     Indication: MULTIPLE SCLEROSIS
     Route: 058
     Dates: start: 20050401, end: 20100531

REACTIONS (5)
  - DYSPHONIA [None]
  - ERYTHEMA [None]
  - RASH [None]
  - SKIN NECROSIS [None]
  - SUFFOCATION FEELING [None]
